FAERS Safety Report 5071773-2 (Version None)
Quarter: 2006Q3

REPORT INFORMATION
  Report Type: 
  Country: None (occurrence: None)
  Receive Date: 20060801
  Receipt Date: 20060719
  Transmission Date: 20061208
  Serious: Yes (Death)
  Sender: FDA-Public Use
  Company Number: 2006-152

PATIENT
  Age: 72 Year
  Sex: Female

DRUGS (8)
  1. CIPROFLOXACIN [Suspect]
     Indication: LOWER RESPIRATORY TRACT INFECTION
     Dosage: 1 TABLET TWICE A DAY
     Dates: start: 20060428
  2. CANDESARTAN [Concomitant]
  3. CEFACLOR [Concomitant]
  4. DIGOXIN [Concomitant]
  5. FLUTICASONE PROPIONATE [Concomitant]
  6. FRUSENE [Concomitant]
  7. ALBUTEROL SPIROS [Concomitant]
  8. WARFARIN SODIUM [Concomitant]

REACTIONS (3)
  - HAEMOLYSIS [None]
  - JAUNDICE [None]
  - ORGAN FAILURE [None]
